FAERS Safety Report 17804021 (Version 1)
Quarter: 2020Q2

REPORT INFORMATION
  Report Type: Spontaneous
  Country: GB (occurrence: GB)
  Receive Date: 20200519
  Receipt Date: 20200519
  Transmission Date: 20200714
  Serious: Yes (Other)
  Sender: FDA-Public Use
  Company Number: NVSC2020GB136408

PATIENT
  Age: 38 Year
  Sex: Female
  Weight: 65 kg

DRUGS (3)
  1. PREDNISOLONE. [Suspect]
     Active Substance: PREDNISOLONE
     Indication: BREATH SOUNDS ABNORMAL
     Dosage: 30 MG
     Route: 048
     Dates: start: 20200220, end: 20200223
  2. OMEPRAZOLE. [Concomitant]
     Active Substance: OMEPRAZOLE
     Indication: PRODUCT USED FOR UNKNOWN INDICATION
     Dosage: 40 MG, QD
     Route: 065
     Dates: start: 20200220, end: 20200223
  3. CLARITHROMYCIN. [Suspect]
     Active Substance: CLARITHROMYCIN
     Indication: BREATH SOUNDS ABNORMAL
     Dosage: 1000 MG, QD
     Route: 048
     Dates: start: 20200220, end: 20200221

REACTIONS (11)
  - Psychomotor hyperactivity [Recovered/Resolved with Sequelae]
  - Flatulence [Recovered/Resolved]
  - Back pain [Unknown]
  - Abdominal pain upper [Recovered/Resolved]
  - Faeces pale [Recovering/Resolving]
  - Dizziness [Unknown]
  - Fatigue [Recovering/Resolving]
  - Hepatic pain [Recovered/Resolved]
  - Nightmare [Recovered/Resolved]
  - Vision blurred [Recovered/Resolved]
  - Palpitations [Recovering/Resolving]

NARRATIVE: CASE EVENT DATE: 20200221
